FAERS Safety Report 7458434-7 (Version None)
Quarter: 2011Q2

REPORT INFORMATION
  Report Type: 
  Country: None (occurrence: None)
  Receive Date: 20110504
  Receipt Date: 20110427
  Transmission Date: 20111010
  Serious: Yes (Other)
  Sender: FDA-Public Use
  Company Number: A0925642A

PATIENT
  Age: 64 Year
  Sex: Male

DRUGS (2)
  1. LYRICA [Concomitant]
  2. LAMICTAL [Suspect]
     Dosage: 200MG TWICE PER DAY
     Route: 048

REACTIONS (6)
  - MASTICATION DISORDER [None]
  - LOSS OF CONSCIOUSNESS [None]
  - SPEECH DISORDER [None]
  - CONVULSION [None]
  - VISUAL IMPAIRMENT [None]
  - SYNCOPE [None]
